FAERS Safety Report 11156264 (Version 1)
Quarter: 2015Q2

REPORT INFORMATION
  Report Type: Spontaneous
  Country: GB (occurrence: GB)
  Receive Date: 20150602
  Receipt Date: 20150602
  Transmission Date: 20150821
  Serious: Yes (Life-Threatening, Hospitalization)
  Sender: FDA-Public Use
  Company Number: GB-GALDERMA-GB15004346

PATIENT
  Age: 48 Year
  Sex: Male
  Weight: 82.55 kg

DRUGS (3)
  1. BRIMONIDINE TARTRATE. [Suspect]
     Active Substance: BRIMONIDINE TARTRATE
     Indication: FLUSHING
     Route: 061
     Dates: start: 201410, end: 201412
  2. BRIMONIDINE TARTRATE. [Suspect]
     Active Substance: BRIMONIDINE TARTRATE
     Indication: FLUSHING
  3. OXYTETRACYCLINE [Concomitant]
     Active Substance: OXYTETRACYCLINE

REACTIONS (5)
  - Erythema [Unknown]
  - Product use issue [Recovered/Resolved]
  - Tremor [Recovering/Resolving]
  - Constipation [Unknown]
  - Hypotension [Recovered/Resolved]

NARRATIVE: CASE EVENT DATE: 201410
